FAERS Safety Report 4678826-9 (Version None)
Quarter: 2005Q2

REPORT INFORMATION
  Report Type: 
  Country: None (occurrence: None)
  Receive Date: 20050531
  Receipt Date: 20050519
  Transmission Date: 20051028
  Serious: Yes (Life-Threatening, Other)
  Sender: FDA-Public Use
  Company Number: MC200500448

PATIENT

DRUGS (1)
  1. ANGIOMAX [Suspect]
     Dosage: SEE IMAGE, INTRAVENOUS
     Route: 042

REACTIONS (2)
  - CARDIAC ARREST [None]
  - THROMBOSIS [None]
